FAERS Safety Report 5972871-9 (Version None)
Quarter: 2008Q4

REPORT INFORMATION
  Report Type: 
  Country: None (occurrence: None)
  Receive Date: 20081201
  Receipt Date: 20081120
  Transmission Date: 20090506
  Serious: Yes (Hospitalization, Other)
  Sender: FDA-Public Use
  Company Number: JP-BAYER-200812071BYL

PATIENT
  Age: 71 Year
  Sex: Male
  Weight: 55 kg

DRUGS (4)
  1. NEXAVAR [Suspect]
     Indication: RENAL CELL CARCINOMA STAGE IV
     Dosage: AS USED: 400 MG  UNIT DOSE: 200 MG
     Route: 048
     Dates: start: 20080508, end: 20080520
  2. TAGAMET [Concomitant]
     Route: 048
     Dates: start: 20080301
  3. KINEDAK [Concomitant]
     Route: 048
     Dates: start: 20080301
  4. ALTAT [Concomitant]
     Route: 048
     Dates: start: 20080301

REACTIONS (2)
  - CEREBRAL INFARCTION [None]
  - HYPERTENSION [None]
